FAERS Safety Report 13504968 (Version 1)
Quarter: 2017Q2

REPORT INFORMATION
  Report Type: Spontaneous
  Country: FI (occurrence: FI)
  Receive Date: 20170502
  Receipt Date: 20170502
  Transmission Date: 20170830
  Serious: Yes (Hospitalization)
  Sender: FDA-Public Use
  Company Number: FI-PFIZER INC-2017190761

PATIENT
  Age: 70 Year
  Sex: Female

DRUGS (6)
  1. TREXAN [Suspect]
     Active Substance: METHOTREXATE SODIUM
     Indication: PSORIATIC ARTHROPATHY
     Dosage: 25 MG, WEEKLY
     Route: 058
     Dates: start: 20161129, end: 20170322
  2. BURANA [Concomitant]
     Active Substance: IBUPROFEN
     Dosage: UNK
     Route: 048
  3. FOLIC ACID. [Concomitant]
     Active Substance: FOLIC ACID
     Dosage: UNK
  4. THYROXIN [Concomitant]
     Active Substance: LEVOTHYROXINE
     Indication: HYPOTHYROIDISM
     Dosage: 25 UG, UNK
     Route: 048
  5. SELOKENZOC [Concomitant]
     Active Substance: METOPROLOL SUCCINATE
     Dosage: 47.5 MG, 1X/DAY
     Route: 048
  6. TREXAN [Suspect]
     Active Substance: METHOTREXATE SODIUM
     Indication: PSORIASIS

REACTIONS (3)
  - Pneumonia [Recovering/Resolving]
  - Interstitial lung disease [Recovering/Resolving]
  - Increased bronchial secretion [Recovering/Resolving]

NARRATIVE: CASE EVENT DATE: 20170322
